FAERS Safety Report 10956550 (Version 1)
Quarter: 2015Q1

REPORT INFORMATION
  Report Type: Spontaneous
  Country: US (occurrence: US)
  Receive Date: 20150326
  Receipt Date: 20150326
  Transmission Date: 20150721
  Serious: Yes (Other)
  Sender: FDA-Public Use
  Company Number: US-AMGEN-USASP2015027610

PATIENT

DRUGS (7)
  1. FILGRASTIM [Suspect]
     Active Substance: FILGRASTIM
     Indication: DIFFUSE LARGE B-CELL LYMPHOMA
     Dosage: 5 MCG/KG, DAILY, STARTING FROM DAY 2
     Route: 058
  2. PEGFILGRASTIM [Suspect]
     Active Substance: PEGFILGRASTIM
     Indication: DIFFUSE LARGE B-CELL LYMPHOMA
     Dosage: 6 MG, 1 IN 21 D
     Route: 058
  3. PREDNISONE. [Suspect]
     Active Substance: PREDNISONE
     Indication: DIFFUSE LARGE B-CELL LYMPHOMA
     Dosage: 40 MG/M2, ON DAY 1 TO 5 OF EACH CYCLE
     Route: 048
  4. RITUXIMAB [Suspect]
     Active Substance: RITUXIMAB
     Indication: DIFFUSE LARGE B-CELL LYMPHOMA
     Dosage: 375 MG/M2, ON DAY 1
     Route: 042
  5. CYCLOPHOSPHAMIDE. [Suspect]
     Active Substance: CYCLOPHOSPHAMIDE
     Indication: DIFFUSE LARGE B-CELL LYMPHOMA
     Dosage: 750 MG/M2, ON DAY 1 OF CYCLE
     Route: 042
  6. PEGYLATED LIPOSOMAL DOXORUBICIN HCL [Suspect]
     Active Substance: DOXORUBICIN HYDROCHLORIDE
     Indication: DIFFUSE LARGE B-CELL LYMPHOMA
     Dosage: 40 MG/M2, OVER 1 HOUR, ON DAY 1
     Route: 042
  7. VINCRISTINE [Suspect]
     Active Substance: VINCRISTINE
     Indication: DIFFUSE LARGE B-CELL LYMPHOMA
     Dosage: 2 MG, ON DAY 1 OF CYCLE
     Route: 042

REACTIONS (1)
  - Leukaemia [Unknown]
